APPROVED DRUG PRODUCT: THEOPHYL-225
Active Ingredient: THEOPHYLLINE
Strength: 225MG
Dosage Form/Route: TABLET;ORAL
Application: A084726 | Product #001
Applicant: ORTHO MCNEIL PHARMACEUTICAL INC
Approved: Approved Prior to Jan 1, 1982 | RLD: No | RS: No | Type: DISCN